FAERS Safety Report 14937061 (Version 1)
Quarter: 2018Q2

REPORT INFORMATION
  Report Type: Spontaneous
  Country: FR (occurrence: FR)
  Receive Date: 20180525
  Receipt Date: 20180525
  Transmission Date: 20180711
  Serious: Yes (Hospitalization, Other)
  Sender: FDA-Public Use
  Company Number: FR-MERCK KGAA-2048427

PATIENT
  Age: 68 Year
  Sex: Male
  Weight: 54 kg

DRUGS (5)
  1. NOVOTHYROX [Suspect]
     Active Substance: LEVOTHYROXINE SODIUM
     Indication: THYROID HORMONE REPLACEMENT THERAPY
     Route: 048
     Dates: start: 20170807
  2. NOVOTHYROX [Suspect]
     Active Substance: LEVOTHYROXINE SODIUM
     Route: 048
     Dates: start: 20170906, end: 2017
  3. OMEPRAZOLE(OMEPRAZOLE) [Concomitant]
     Active Substance: OMEPRAZOLE
  4. DOLIPRANE [Concomitant]
     Active Substance: ACETAMINOPHEN
  5. PARACETAMOL(PARACETAMOL) [Concomitant]

REACTIONS (48)
  - Fatigue [Recovering/Resolving]
  - Memory impairment [Recovering/Resolving]
  - Balance disorder [Recovering/Resolving]
  - Dry mouth [Recovering/Resolving]
  - Irritability [Recovering/Resolving]
  - Cognitive disorder [Recovering/Resolving]
  - Muscle spasms [Recovering/Resolving]
  - Dry skin [Recovering/Resolving]
  - Blood thyroid stimulating hormone increased [Recovering/Resolving]
  - Middle insomnia [Recovering/Resolving]
  - Pruritus [Recovering/Resolving]
  - Fear of falling [Recovering/Resolving]
  - Social avoidant behaviour [Recovering/Resolving]
  - Weight decreased [Recovering/Resolving]
  - Erythema [Recovering/Resolving]
  - Speech disorder [Recovering/Resolving]
  - Fear of disease [Recovering/Resolving]
  - Headache [Recovering/Resolving]
  - Nervousness [Recovering/Resolving]
  - Dizziness [Recovering/Resolving]
  - Anxiety [Recovering/Resolving]
  - Sleep disorder [Recovering/Resolving]
  - Decreased activity [Recovering/Resolving]
  - General physical health deterioration [Recovering/Resolving]
  - Blood phosphorus decreased [Recovering/Resolving]
  - Migraine [Recovering/Resolving]
  - Hyperhidrosis [Recovering/Resolving]
  - Confusional state [Recovering/Resolving]
  - Gait disturbance [Recovering/Resolving]
  - Pain [Recovering/Resolving]
  - Blood glucose increased [Recovering/Resolving]
  - Disorientation [Recovering/Resolving]
  - Dyspnoea [Recovering/Resolving]
  - Somnolence [Recovering/Resolving]
  - Asthenia [Recovering/Resolving]
  - Body temperature increased [Recovering/Resolving]
  - Palpitations [Recovering/Resolving]
  - Tremor [Recovering/Resolving]
  - Blood pressure increased [Recovering/Resolving]
  - Disturbance in attention [Recovering/Resolving]
  - Chest discomfort [Recovering/Resolving]
  - Skin disorder [Recovering/Resolving]
  - Dyslexia [Recovering/Resolving]
  - Feeling abnormal [Recovering/Resolving]
  - Blood cholesterol increased [Recovering/Resolving]
  - Nausea [Recovering/Resolving]
  - Muscular weakness [Recovering/Resolving]
  - Alopecia [Recovering/Resolving]

NARRATIVE: CASE EVENT DATE: 20170808
